FAERS Safety Report 11294847 (Version 1)
Quarter: 2015Q3

REPORT INFORMATION
  Report Type: Spontaneous
  Country: SE (occurrence: SE)
  Receive Date: 20150723
  Receipt Date: 20150723
  Transmission Date: 20151125
  Serious: Yes (Other)
  Sender: FDA-Public Use
  Company Number: SE-ORION CORPORATION ORION PHARMA-15_00001307

PATIENT
  Age: 81 Year
  Sex: Male

DRUGS (9)
  1. LAKTULOS [Concomitant]
     Dosage: STRENGTH: 670 MG/ML
     Route: 065
  2. MADOPARK [Concomitant]
     Dosage: STRENGTH: 100/25 MG
     Route: 065
  3. EBIXA [Concomitant]
     Active Substance: MEMANTINE HYDROCHLORIDE
     Dosage: STRENGTH: 20 MG
     Route: 065
  4. RESULAX [Concomitant]
     Dosage: STRENGTH: 8.5 G
     Route: 065
  5. STALEVO [Suspect]
     Active Substance: CARBIDOPA\ENTACAPONE\LEVODOPA
     Dosage: STRENGTH: 100/25/200 MG
     Route: 065
     Dates: start: 20150614, end: 20150626
  6. STALEVO [Suspect]
     Active Substance: CARBIDOPA\ENTACAPONE\LEVODOPA
     Dosage: STRENGTH: 100/25/200 MG
     Route: 065
     Dates: start: 20150520, end: 20150613
  7. MADOPARK [Concomitant]
     Dosage: STRENGTH: 100/25 MG
     Route: 065
  8. WARAN [Concomitant]
     Active Substance: WARFARIN SODIUM
     Dosage: STRENGTH: 2.5 MG
     Route: 065
  9. RIVASTIGMINE. [Concomitant]
     Active Substance: RIVASTIGMINE
     Dosage: STRENGTH: 6 MG
     Route: 065

REACTIONS (3)
  - Abnormal dreams [Recovered/Resolved]
  - Confusional state [Recovered/Resolved]
  - Urine output increased [Recovered/Resolved]

NARRATIVE: CASE EVENT DATE: 20150614
